FAERS Safety Report 17156927 (Version 1)
Quarter: 2019Q4

REPORT INFORMATION
  Report Type: Report from Study
  Country: DE (occurrence: DE)
  Receive Date: 20191216
  Receipt Date: 20191216
  Transmission Date: 20200122
  Serious: Yes (Congenital Anomaly)
  Sender: FDA-Public Use
  Company Number: DE-TEVA-2019-DE-1150947

PATIENT
  Age: 8 Month

DRUGS (3)
  1. LEVETIRACETAM. [Suspect]
     Active Substance: LEVETIRACETAM
     Indication: EPILEPSY
     Dosage: 500 MILLIGRAM DAILY; 250 MG, 2X/DAY (BID)
     Route: 064
     Dates: start: 20051110
  2. CARBAMAZEPINE. [Suspect]
     Active Substance: CARBAMAZEPINE
     Indication: EPILEPSY
     Dosage: 1200 MILLIGRAM DAILY; 600 MG, 2X/DAY (BID)
     Route: 064
     Dates: start: 20051110
  3. CLONAZEPAM. [Suspect]
     Active Substance: CLONAZEPAM
     Indication: EPILEPSY
     Dosage: 2 MILLIGRAM DAILY; 2 MG, ONCE DAILY (QD)
     Route: 064
     Dates: start: 20051110

REACTIONS (2)
  - Congenital inguinal hernia [Unknown]
  - Maternal exposure during pregnancy [Recovered/Resolved]

NARRATIVE: CASE EVENT DATE: 20051110
